FAERS Safety Report 8589777-1 (Version None)
Quarter: 2012Q3

REPORT INFORMATION
  Report Type: 
  Country: None (occurrence: None)
  Receive Date: 20120813
  Receipt Date: 20120806
  Transmission Date: 20120928
  Serious: Yes (Hospitalization)
  Sender: FDA-Public Use
  Company Number: FR-TEVA-342450USA

PATIENT
  Sex: Male
  Weight: 180 kg

DRUGS (19)
  1. RITUXIMAB [Suspect]
     Dosage: UID/QD
     Route: 041
     Dates: start: 20120427, end: 20120427
  2. DEXAMETHASONE [Suspect]
     Dosage: UID/QD
     Route: 041
     Dates: start: 20120428, end: 20120428
  3. RITUXIMAB [Suspect]
     Indication: MANTLE CELL LYMPHOMA
     Route: 041
     Dates: start: 20120502
  4. RITUXIMAB [Suspect]
     Route: 041
     Dates: start: 20120330
  5. DEXAMETHASONE [Suspect]
     Route: 041
     Dates: start: 20120525
  6. TREANDA [Suspect]
     Route: 041
     Dates: start: 20120525
  7. BORTEZOMIB [Suspect]
     Route: 058
     Dates: start: 20120525
  8. VALACYCLOVIR HYDROCHLORIDE [Concomitant]
  9. LEDERFOLDINE [Concomitant]
  10. PREVISCAN [Concomitant]
     Route: 048
     Dates: start: 20010101
  11. BORTEZOMIB [Suspect]
     Route: 058
     Dates: start: 20120330
  12. TREANDA [Suspect]
     Indication: MANTLE CELL LYMPHOMA
     Route: 041
     Dates: start: 20120302
  13. BORTEZOMIB [Suspect]
     Indication: MANTLE CELL LYMPHOMA
     Route: 058
     Dates: start: 20120302
  14. RITUXIMAB [Suspect]
     Route: 041
     Dates: start: 20120525
  15. DEXAMETHASONE [Suspect]
     Indication: MANTLE CELL LYMPHOMA
     Route: 041
     Dates: start: 20120302
  16. TREANDA [Suspect]
     Dosage: UID/QD
     Route: 041
     Dates: start: 20120427, end: 20120428
  17. TREANDA [Suspect]
     Route: 041
     Dates: start: 20120330
  18. BORTEZOMIB [Suspect]
     Route: 058
     Dates: start: 20120427, end: 20120504
  19. DEXAMETHASONE [Suspect]
     Route: 041
     Dates: start: 20120330

REACTIONS (2)
  - ORAL CANDIDIASIS [None]
  - NAUSEA [None]
